FAERS Safety Report 8462409-9 (Version None)
Quarter: 2012Q2

REPORT INFORMATION
  Report Type: 
  Country: None (occurrence: None)
  Receive Date: 20120625
  Receipt Date: 20120615
  Transmission Date: 20120825
  Serious: Yes (Death, Hospitalization)
  Sender: FDA-Public Use
  Company Number: GR-JNJFOC-20120509106

PATIENT
  Sex: Male

DRUGS (20)
  1. ARVEKAP [Concomitant]
     Route: 030
     Dates: start: 20091222
  2. DEPON [Concomitant]
     Indication: BONE PAIN
     Route: 048
     Dates: start: 20101001
  3. BUDESONIDE [Concomitant]
     Indication: CHRONIC OBSTRUCTIVE PULMONARY DISEASE
     Route: 055
     Dates: start: 19940101
  4. ARVEKAP [Concomitant]
     Indication: HORMONE THERAPY
     Route: 030
     Dates: start: 20060929
  5. LONALGAL [Concomitant]
     Indication: CANCER PAIN
     Route: 048
     Dates: start: 20111025
  6. LONARID-N [Concomitant]
     Indication: CANCER PAIN
     Route: 048
     Dates: start: 20120313
  7. DURAGESIC-100 [Concomitant]
     Indication: CANCER PAIN
     Route: 048
     Dates: start: 20120411, end: 20120531
  8. PREDNISOLONE [Suspect]
     Indication: PROSTATE CANCER METASTATIC
     Route: 048
     Dates: start: 20091222, end: 20100923
  9. TIOTROPIUM [Concomitant]
     Indication: CHRONIC OBSTRUCTIVE PULMONARY DISEASE
     Route: 055
     Dates: start: 19940101
  10. ARVEKAP [Concomitant]
     Route: 030
     Dates: start: 20060929
  11. ZOLEDRONIC ACID [Concomitant]
     Indication: PROPHYLAXIS
     Route: 042
  12. ABSTRAL [Concomitant]
     Indication: CANCER PAIN
     Route: 048
     Dates: start: 20120411, end: 20120531
  13. ABIRATERONE ACETATE [Suspect]
     Indication: PROSTATE CANCER METASTATIC
     Route: 048
     Dates: start: 20091222, end: 20100923
  14. ABIRATERONE ACETATE [Suspect]
     Route: 048
     Dates: start: 20100930, end: 20120505
  15. PREDNISOLONE [Suspect]
     Route: 048
     Dates: start: 20100924, end: 20120504
  16. LANSOPRAZOLE [Concomitant]
     Indication: GASTROINTESTINAL DISORDER THERAPY
     Dosage: AS REQUIRED
     Route: 048
     Dates: start: 20080101
  17. LAPRAZOL [Concomitant]
     Indication: GASTROINTESTINAL DISORDER THERAPY
     Route: 048
     Dates: start: 20101001
  18. DEPON [Concomitant]
     Indication: CANCER PAIN
     Route: 048
  19. ARVEKAP [Concomitant]
     Indication: PROSTATE CANCER
     Route: 030
     Dates: start: 20091222
  20. STALEVO 100 [Concomitant]
     Indication: EXTRAPYRAMIDAL DISORDER
     Route: 048
     Dates: start: 20101101

REACTIONS (1)
  - SOFT TISSUE INFECTION [None]
